FAERS Safety Report 14601437 (Version 4)
Quarter: 2018Q3

REPORT INFORMATION
  Report Type: Report from Study
  Country: None (occurrence: BR)
  Receive Date: 20180305
  Receipt Date: 20180801
  Transmission Date: 20181010
  Serious: Yes (Hospitalization, Other)
  Sender: FDA-Public Use
  Company Number: BR-ABBVIE-18K-020-2273272-00

PATIENT
  Sex: Male
  Weight: 48.5 kg

DRUGS (5)
  1. HUMIRA [Suspect]
     Active Substance: ADALIMUMAB
     Indication: CROHN^S DISEASE
     Dosage: LOADING DOSE;WEEK 0
     Route: 058
     Dates: start: 20130531, end: 20130531
  2. HUMIRA [Suspect]
     Active Substance: ADALIMUMAB
     Dosage: LOADING DOSE; WEEK 2
     Route: 058
     Dates: start: 20130614, end: 20130614
  3. HUMIRA [Suspect]
     Active Substance: ADALIMUMAB
     Dosage: MAINTENANCE DOSE
     Route: 058
     Dates: start: 2013
  4. HUMIRA [Suspect]
     Active Substance: ADALIMUMAB
     Route: 058
     Dates: start: 20180720
  5. AZATHIOPRINE. [Suspect]
     Active Substance: AZATHIOPRINE
     Indication: PRODUCT USED FOR UNKNOWN INDICATION
     Route: 065

REACTIONS (12)
  - Crohn^s disease [Unknown]
  - Haemoglobin abnormal [Recovered/Resolved]
  - Alanine aminotransferase abnormal [Recovered/Resolved]
  - Vesical fistula [Recovering/Resolving]
  - Drug intolerance [Unknown]
  - Protein total abnormal [Recovered/Resolved]
  - Intestinal fistula [Unknown]
  - Polymerase chain reaction positive [Recovered/Resolved]
  - Aspartate aminotransferase abnormal [Recovered/Resolved]
  - Ileal stenosis [Unknown]
  - Blood iron decreased [Unknown]
  - Vitamin D decreased [Not Recovered/Not Resolved]

NARRATIVE: CASE EVENT DATE: 2018
